FAERS Safety Report 6400509-5 (Version None)
Quarter: 2009Q4

REPORT INFORMATION
  Report Type: 
  Country: None (occurrence: None)
  Receive Date: 20091013
  Receipt Date: 20091013
  Transmission Date: 20100525
  Serious: Yes (Other)
  Sender: FDA-Public Use
  Company Number: None

PATIENT
  Age: 67 Year
  Sex: Male
  Weight: 77.1115 kg

DRUGS (1)
  1. PREVIDENT 5000 PLUS 1.1% SODIUM FLUORIDE COLGATE [Suspect]
     Indication: DENTAL DISORDER PROPHYLAXIS
     Dosage: SMALL RIBBON NIGHTLY DENTAL
     Route: 004
     Dates: start: 20080110, end: 20090921

REACTIONS (1)
  - ALOPECIA [None]
